FAERS Safety Report 7613505-7 (Version None)
Quarter: 2011Q3

REPORT INFORMATION
  Report Type: 
  Country: None (occurrence: None)
  Receive Date: 20110708
  Receipt Date: 20110630
  Transmission Date: 20111222
  Serious: Yes (Hospitalization, Other)
  Sender: FDA-Public Use
  Company Number: 2009SP021087

PATIENT
  Age: 23 Year
  Sex: Female
  Weight: 49.8957 kg

DRUGS (2)
  1. ALBUTERNOL [Concomitant]
  2. NUVARING [Suspect]
     Indication: PRODUCT USED FOR UNKNOWN INDICATION
     Dosage: VAG
     Route: 067
     Dates: start: 20050315, end: 20051001

REACTIONS (9)
  - TENDONITIS [None]
  - CERVICAL DYSPLASIA [None]
  - URINARY TRACT INFECTION [None]
  - ARTERIAL THROMBOSIS LIMB [None]
  - THORACIC OUTLET SYNDROME [None]
  - STRESS [None]
  - CERVICAL RIB [None]
  - HUMAN PAPILLOMA VIRUS TEST POSITIVE [None]
  - DEEP VEIN THROMBOSIS [None]
